FAERS Safety Report 6599260-0 (Version None)
Quarter: 2010Q1

REPORT INFORMATION
  Report Type: 
  Country: None (occurrence: None)
  Receive Date: 20100224
  Receipt Date: 20100218
  Transmission Date: 20100710
  Serious: Yes (Death)
  Sender: FDA-Public Use
  Company Number: PHHY2010DE10134

PATIENT
  Sex: Male

DRUGS (1)
  1. SIMULECT [Suspect]
     Indication: LIVER TRANSPLANT
     Dosage: 20 MG, UNK

REACTIONS (3)
  - CARDIAC DISORDER [None]
  - COMPLICATIONS OF TRANSPLANTED LIVER [None]
  - LIVER TRANSPLANT [None]
